FAERS Safety Report 4870570-8 (Version None)
Quarter: 2006Q1

REPORT INFORMATION
  Report Type: 
  Country: None (occurrence: None)
  Receive Date: 20060103
  Receipt Date: 20051220
  Transmission Date: 20060701
  Serious: Yes (Life-Threatening, Hospitalization, Other)
  Sender: FDA-Public Use
  Company Number: US-AVENTIS-200520727US

PATIENT
  Sex: Female
  Weight: 60.7 kg

DRUGS (1)
  1. ARAVA [Suspect]
     Indication: RHEUMATOID ARTHRITIS
     Dates: start: 20030101, end: 20050101

REACTIONS (13)
  - CONTUSION [None]
  - DIARRHOEA [None]
  - EPISTAXIS [None]
  - FAECES DISCOLOURED [None]
  - HAEMOPTYSIS [None]
  - HEADACHE [None]
  - IDIOPATHIC THROMBOCYTOPENIC PURPURA [None]
  - INJECTION SITE HAEMORRHAGE [None]
  - MEGAKARYOCYTES ABNORMAL [None]
  - PLATELET COUNT DECREASED [None]
  - PYREXIA [None]
  - SINUSITIS [None]
  - VOMITING [None]
